FAERS Safety Report 10033306 (Version 1)
Quarter: 2014Q1

REPORT INFORMATION
  Report Type: Spontaneous
  Country: US (occurrence: US)
  Receive Date: 20140324
  Receipt Date: 20140324
  Transmission Date: 20141002
  Serious: Yes (Death)
  Sender: FDA-Public Use
  Company Number: US-ROCHE-1370938

PATIENT
  Age: 81 Year
  Sex: Male

DRUGS (9)
  1. XELODA [Suspect]
     Indication: PANCREATIC CARCINOMA
     Route: 048
     Dates: start: 20131223
  2. FERROUS SULFATE [Concomitant]
  3. FLOMAX (UNITED STATES) [Concomitant]
  4. PANTOPRAZOLE [Concomitant]
  5. DILTIAZEM [Concomitant]
  6. DIGOXIN [Concomitant]
  7. ATROPINE [Concomitant]
  8. CAMPTOSAR [Concomitant]
  9. DECADRON [Concomitant]

REACTIONS (1)
  - Death [Fatal]
